FAERS Safety Report 5669343-8 (Version None)
Quarter: 2008Q1

REPORT INFORMATION
  Report Type: 
  Country: None (occurrence: None)
  Receive Date: 20080311
  Receipt Date: 20080311
  Transmission Date: 20080703
  Serious: Yes (Hospitalization)
  Sender: FDA-Public Use
  Company Number: None

PATIENT
  Sex: Male

DRUGS (1)
  1. TEMOZOLOMIDE [Suspect]
     Indication: ACUTE MYELOID LEUKAEMIA
     Dosage: 100MG/M2 (200MG) QD PO
     Route: 048
     Dates: start: 20060227, end: 20080209

REACTIONS (1)
  - FEBRILE NEUTROPENIA [None]
